FAERS Safety Report 7109331-8 (Version None)
Quarter: 2010Q4

REPORT INFORMATION
  Report Type: 
  Country: None (occurrence: None)
  Receive Date: 20101118
  Receipt Date: 20101103
  Transmission Date: 20110411
  Serious: Yes (Other)
  Sender: FDA-Public Use
  Company Number: GB-BIOGENIDEC-2010BI033687

PATIENT
  Age: 42 Year
  Sex: Female

DRUGS (1)
  1. TYSABRI [Suspect]
     Indication: PRODUCT USED FOR UNKNOWN INDICATION
     Dates: start: 20070612, end: 20090901

REACTIONS (4)
  - ABNORMAL BEHAVIOUR [None]
  - COGNITIVE DISORDER [None]
  - MULTIPLE SCLEROSIS RELAPSE [None]
  - PROGRESSIVE MULTIFOCAL LEUKOENCEPHALOPATHY [None]
